FAERS Safety Report 9138253 (Version 2)
Quarter: 2013Q1

REPORT INFORMATION
  Report Type: Spontaneous
  Country: BR (occurrence: BR)
  Receive Date: 20130305
  Receipt Date: 20130320
  Transmission Date: 20140127
  Serious: Yes (Other)
  Sender: FDA-Public Use
  Company Number: BR-AMGEN-BRASP2013014325

PATIENT
  Age: 69 Year
  Sex: Female

DRUGS (4)
  1. ENBREL [Suspect]
     Indication: RHEUMATOID ARTHRITIS
     Dosage: 50 MG, 1X/WEEK
     Route: 058
     Dates: start: 201211, end: 201212
  2. DICLOFENAC [Concomitant]
     Indication: PAIN
     Dosage: UNK,
  3. DICLOFENAC SODIUM [Concomitant]
     Dosage: UNK
  4. BUSCOPAN [Concomitant]
     Indication: PAIN
     Dosage: 1 DF, AS NEEDED

REACTIONS (8)
  - Pain in extremity [Unknown]
  - Diabetes mellitus [Recovered/Resolved]
  - Renal disorder [Unknown]
  - Lung disorder [Unknown]
  - Local swelling [Unknown]
  - Pruritus generalised [Unknown]
  - Blister [Unknown]
  - Skin discolouration [Unknown]
